FAERS Safety Report 9203852 (Version 1)
Quarter: 2013Q2

REPORT INFORMATION
  Report Type: Spontaneous
  Country: US (occurrence: US)
  Receive Date: 20130402
  Receipt Date: 20130402
  Transmission Date: 20140414
  Serious: No
  Sender: FDA-Public Use
  Company Number: US-009507513-1303USA012610

PATIENT
  Sex: Male

DRUGS (1)
  1. TEMODAR [Suspect]
     Dosage: 260 MG, UNK

REACTIONS (6)
  - Nausea [Unknown]
  - Dizziness [Unknown]
  - Hypoaesthesia [Unknown]
  - Asthenia [Unknown]
  - Diarrhoea [Unknown]
  - Abdominal pain [Unknown]
